FAERS Safety Report 25205769 (Version 1)
Quarter: 2025Q2

REPORT INFORMATION
  Report Type: Spontaneous
  Country: FR (occurrence: FR)
  Receive Date: 20250417
  Receipt Date: 20250417
  Transmission Date: 20250716
  Serious: Yes (Hospitalization)
  Sender: CHEPLAPHARM
  Company Number: None

PATIENT
  Age: 28 Year
  Sex: Female
  Weight: 65 kg

DRUGS (10)
  1. OLANZAPINE [Suspect]
     Active Substance: OLANZAPINE
     Indication: Depression
     Dosage: AT BEDTIME?DAILY DOSE: 5 MILLIGRAM
     Route: 048
     Dates: start: 202409, end: 202502
  2. SERTRALINE HYDROCHLORIDE [Suspect]
     Active Substance: SERTRALINE HYDROCHLORIDE
     Indication: Depression
     Dosage: DAILY DOSE: 50 MILLIGRAM
     Route: 048
     Dates: start: 20241218
  3. SERTRALINE HYDROCHLORIDE [Suspect]
     Active Substance: SERTRALINE HYDROCHLORIDE
     Indication: Depression
     Dosage: DAILY DOSE: 100 MILLIGRAM
     Route: 048
     Dates: start: 20241226
  4. SERTRALINE HYDROCHLORIDE [Suspect]
     Active Substance: SERTRALINE HYDROCHLORIDE
     Indication: Depression
     Dosage: DAILY DOSE: 150 MILLIGRAM
     Route: 048
     Dates: start: 20250102
  5. KEPPRA [Suspect]
     Active Substance: LEVETIRACETAM
     Dates: start: 2023
  6. KEPPRA [Suspect]
     Active Substance: LEVETIRACETAM
     Dates: end: 20250216
  7. VORTIOXETINE [Suspect]
     Active Substance: VORTIOXETINE
     Indication: Depression
     Dates: end: 20241218
  8. PRAZEPAM [Suspect]
     Active Substance: PRAZEPAM
  9. VALPROATE SODIUM [Concomitant]
     Active Substance: VALPROATE SODIUM
     Dates: start: 20250216
  10. VALPROATE SODIUM [Concomitant]
     Active Substance: VALPROATE SODIUM
     Dates: end: 2023

REACTIONS (2)
  - Epilepsy [Recovered/Resolved]
  - Drug ineffective [Unknown]

NARRATIVE: CASE EVENT DATE: 20250128
